FAERS Safety Report 7889134-7 (Version None)
Quarter: 2011Q4

REPORT INFORMATION
  Report Type: 
  Country: None (occurrence: None)
  Receive Date: 20111103
  Receipt Date: 20111014
  Transmission Date: 20120403
  Serious: Yes (Other)
  Sender: FDA-Public Use
  Company Number: US-BAYER-201031599NA

PATIENT
  Age: 19 Year
  Sex: Female
  Weight: 70.295 kg

DRUGS (6)
  1. CIPROFLOXACIN [Concomitant]
  2. YASMIN [Suspect]
     Dosage: UNK
     Dates: start: 20081201, end: 20090201
  3. DROSPIRENONE AND ETHINYL ESTRADIOL [Suspect]
     Dosage: UNK
     Dates: start: 20090301, end: 20090801
  4. LEVAQUIN [Concomitant]
  5. YAZ [Suspect]
     Dosage: UNK
     Route: 048
     Dates: start: 20080401, end: 20081101
  6. ZITHROMAX [Concomitant]

REACTIONS (6)
  - BILIARY DYSKINESIA [None]
  - GALLBLADDER DISORDER [None]
  - ABDOMINAL PAIN [None]
  - PAIN [None]
  - CHOLELITHIASIS [None]
  - CHOLECYSTITIS CHRONIC [None]
